FAERS Safety Report 9579929 (Version 5)
Quarter: 2019Q2

REPORT INFORMATION
  Report Type: Spontaneous
  Country: CA (occurrence: CA)
  Receive Date: 20131002
  Receipt Date: 20190607
  Transmission Date: 20190711
  Serious: Yes (Other)
  Sender: FDA-Public Use
  Company Number: CA-ASTRAZENECA-2013SE71198

PATIENT
  Age: 56 Year
  Sex: Female

DRUGS (24)
  1. RITUXAN [Suspect]
     Active Substance: RITUXIMAB
     Indication: SJOGREN^S SYNDROME
     Dosage: 1000.0MG UNKNOWN
     Route: 065
     Dates: start: 20070525
  2. ALTACE [Concomitant]
     Active Substance: RAMIPRIL
  3. ATACAND [Concomitant]
     Active Substance: CANDESARTAN CILEXETIL
  4. LYRICA [Suspect]
     Active Substance: PREGABALIN
     Route: 065
     Dates: end: 2013
  5. DOMPERIDONE [Suspect]
     Active Substance: DOMPERIDONE
     Route: 065
     Dates: end: 2013
  6. NORVASC [Concomitant]
     Active Substance: AMLODIPINE BESYLATE
  7. DIPHENHYDRAMINE HYDROCHLORIDE. [Concomitant]
     Active Substance: DIPHENHYDRAMINE HYDROCHLORIDE
  8. LANTUS [Suspect]
     Active Substance: INSULIN GLARGINE
     Route: 065
     Dates: end: 2013
  9. DEPO-MEDROL [Suspect]
     Active Substance: METHYLPREDNISOLONE ACETATE
     Route: 065
  10. ELTROXIN [Concomitant]
     Active Substance: LEVOTHYROXINE
  11. CRESTOR [Concomitant]
     Active Substance: ROSUVASTATIN CALCIUM
  12. VITAMIN D [Concomitant]
     Active Substance: VITAMIN D NOS
  13. METHYLPREDNISOLONE. [Concomitant]
     Active Substance: METHYLPREDNISOLONE
  14. BEESWAX WHITE [Suspect]
     Active Substance: WHITE WAX
     Route: 065
  15. SYNTHROID [Concomitant]
     Active Substance: LEVOTHYROXINE SODIUM
  16. ACETAMINOPHEN. [Concomitant]
     Active Substance: ACETAMINOPHEN
  17. DIAMICRON [Suspect]
     Active Substance: GLICLAZIDE
     Indication: DIABETES MELLITUS
     Route: 065
     Dates: end: 2013
  18. EZETROL [Concomitant]
     Active Substance: EZETIMIBE
  19. APO-HYDRO [Concomitant]
     Active Substance: HYDROCHLOROTHIAZIDE
  20. LISINOPRIL. [Concomitant]
     Active Substance: LISINOPRIL
     Route: 065
  21. METHYLPREDNISOLONE ACETATE. [Concomitant]
     Active Substance: METHYLPREDNISOLONE ACETATE
  22. NEXIUM [Suspect]
     Active Substance: ESOMEPRAZOLE MAGNESIUM
     Route: 048
     Dates: end: 2013
  23. PREDNISONE. [Concomitant]
     Active Substance: PREDNISONE
  24. JANUVIA [Concomitant]
     Active Substance: SITAGLIPTIN PHOSPHATE

REACTIONS (2)
  - Coronary artery occlusion [Not Recovered/Not Resolved]
  - Arthritis [Not Recovered/Not Resolved]

NARRATIVE: CASE EVENT DATE: 2007
